FAERS Safety Report 9985986 (Version 1)
Quarter: 2014Q1

REPORT INFORMATION
  Report Type: Report from Study
  Country: US (occurrence: US)
  Receive Date: 20140307
  Receipt Date: 20140307
  Transmission Date: 20141002
  Serious: No
  Sender: FDA-Public Use
  Company Number: US-ABBVIE-13P-163-1088606-00

PATIENT
  Age: 78 Year
  Sex: Female

DRUGS (15)
  1. HUMIRA [Suspect]
     Indication: CROHN^S DISEASE
     Dates: start: 20130504
  2. NEURONTIN [Concomitant]
     Indication: ARTHRALGIA
  3. METHADONE [Concomitant]
     Indication: PAIN
  4. LEVOTHYROXINE [Concomitant]
     Indication: HYPOTHYROIDISM
  5. DILTIAZEM [Concomitant]
     Indication: CARDIAC DISORDER
  6. POTASSIUM [Concomitant]
     Indication: PRODUCT USED FOR UNKNOWN INDICATION
  7. TOPROL [Concomitant]
     Indication: CARDIAC DISORDER
  8. TOPROL [Concomitant]
     Indication: BLOOD PRESSURE
  9. CALCIUM 600MG WITH 400MG VITAMIN D [Concomitant]
     Indication: PRODUCT USED FOR UNKNOWN INDICATION
     Dosage: DAILY
  10. COUMADIN [Concomitant]
     Indication: BLOOD DISORDER
     Dosage: 2.5MG 5 DAYS A WEEK AND 5MG 1 DAY EVERY WEEK (FLOATING SCALE)
  11. TRAZODONE [Concomitant]
     Indication: POOR QUALITY SLEEP
  12. SIMVASTATIN [Concomitant]
     Indication: BLOOD CHOLESTEROL INCREASED
  13. NEXIUM [Concomitant]
     Indication: GASTRIC DISORDER
  14. SANCTURA [Concomitant]
     Indication: URINARY INCONTINENCE
  15. ZOFRAN [Concomitant]
     Indication: NAUSEA

REACTIONS (9)
  - Feeling abnormal [Not Recovered/Not Resolved]
  - Increased upper airway secretion [Not Recovered/Not Resolved]
  - Upper respiratory tract congestion [Not Recovered/Not Resolved]
  - Restlessness [Not Recovered/Not Resolved]
  - Insomnia [Not Recovered/Not Resolved]
  - Abnormal faeces [Not Recovered/Not Resolved]
  - Chromaturia [Not Recovered/Not Resolved]
  - Pollakiuria [Not Recovered/Not Resolved]
  - Nausea [Not Recovered/Not Resolved]
